FAERS Safety Report 11544826 (Version 4)
Quarter: 2015Q4

REPORT INFORMATION
  Report Type: Spontaneous
  Country: US (occurrence: US)
  Receive Date: 20150924
  Receipt Date: 20151204
  Transmission Date: 20160304
  Serious: Yes (Death, Life-Threatening, Other)
  Sender: FDA-Public Use
  Company Number: US-ACTAVIS-2015-20375

PATIENT
  Age: 32 Year
  Sex: Female

DRUGS (1)
  1. QUETIAPINE (AGPTC) [Suspect]
     Active Substance: QUETIAPINE
     Indication: PRODUCT USED FOR UNKNOWN INDICATION
     Dosage: UNK
     Route: 065

REACTIONS (7)
  - Hypotension [Not Recovered/Not Resolved]
  - Rhabdomyolysis [Fatal]
  - Acute kidney injury [Fatal]
  - Metabolic acidosis [Fatal]
  - Brain oedema [Fatal]
  - Antipsychotic drug level increased [Fatal]
  - Electrocardiogram QRS complex prolonged [Not Recovered/Not Resolved]

NARRATIVE: CASE EVENT DATE: 20140317
